FAERS Safety Report 7306067-5 (Version None)
Quarter: 2011Q1

REPORT INFORMATION
  Report Type: 
  Country: None (occurrence: None)
  Receive Date: 20110209
  Receipt Date: 20110124
  Transmission Date: 20110831
  Serious: Yes (Hospitalization, Other)
  Sender: FDA-Public Use
  Company Number: 2011MA000608

PATIENT
  Age: 61 Year
  Sex: Male

DRUGS (1)
  1. VENLAFAXINE HYDROCHLORIDE [Suspect]
     Indication: MAJOR DEPRESSION
     Dosage: ; BID; PO
     Route: 048

REACTIONS (7)
  - SEROTONIN SYNDROME [None]
  - DRUG SCREEN POSITIVE [None]
  - FALL [None]
  - ANXIETY [None]
  - ATAXIA [None]
  - DIARRHOEA [None]
  - HYPERHIDROSIS [None]
